FAERS Safety Report 18436666 (Version 1)
Quarter: 2020Q4

REPORT INFORMATION
  Report Type: Spontaneous
  Country: US (occurrence: US)
  Receive Date: 20201028
  Receipt Date: 20201028
  Transmission Date: 20210114
  Serious: No
  Sender: FDA-Public Use
  Company Number: US-TEVA-2020-US-1841798

PATIENT
  Sex: Female

DRUGS (1)
  1. CLINDAMYCIN AND BENZOYL PEROXIDE [Suspect]
     Active Substance: BENZOYL PEROXIDE\CLINDAMYCIN PHOSPHATE
     Dosage: FORM STRENGTH: CLINDAMYCIN PHOSPHATE - 1.2 PERCENT AND BENZOYL PEROXIDE - 2.5 PERCENT
     Route: 061
     Dates: start: 20201018

REACTIONS (3)
  - Product contamination physical [Unknown]
  - Dry skin [Unknown]
  - Skin tightness [Unknown]

NARRATIVE: CASE EVENT DATE: 20201018
